FAERS Safety Report 18782221 (Version 1)
Quarter: 2021Q1

REPORT INFORMATION
  Report Type: Spontaneous
  Country: US (occurrence: US)
  Receive Date: 20210125
  Receipt Date: 20210125
  Transmission Date: 20210419
  Serious: No
  Sender: FDA-Public Use
  Company Number: US-ALLERGAN-2006715US

PATIENT
  Age: 84 Year
  Sex: Female

DRUGS (1)
  1. RESTASIS [Suspect]
     Active Substance: CYCLOSPORINE
     Indication: DRY EYE
     Dosage: UNK, QD
     Dates: start: 201901

REACTIONS (4)
  - Eye irritation [Recovered/Resolved]
  - Drug ineffective [Unknown]
  - Eye disorder [Unknown]
  - Product storage error [Unknown]

NARRATIVE: CASE EVENT DATE: 201901
